FAERS Safety Report 22613318 (Version 1)
Quarter: 2023Q2

REPORT INFORMATION
  Report Type: Spontaneous
  Country: US (occurrence: US)
  Receive Date: 20230619
  Receipt Date: 20230619
  Transmission Date: 20230722
  Serious: No
  Sender: FDA-Public Use
  Company Number: US-ALMIRALL, LLC-2022AQU000458

PATIENT

DRUGS (2)
  1. CORDRAN [Suspect]
     Active Substance: FLURANDRENOLIDE
     Indication: Surgery
     Dosage: UNK
     Dates: start: 20221115, end: 20221115
  2. HYDROQUINONE [Concomitant]
     Active Substance: HYDROQUINONE
     Indication: Product used for unknown indication
     Dosage: UNK
     Route: 061

REACTIONS (4)
  - Skin hyperpigmentation [Not Recovered/Not Resolved]
  - Erythema [Not Recovered/Not Resolved]
  - Dermatitis [Not Recovered/Not Resolved]
  - Product adhesion issue [Unknown]

NARRATIVE: CASE EVENT DATE: 20221115
